FAERS Safety Report 10047435 (Version 1)
Quarter: 2014Q1

REPORT INFORMATION
  Report Type: Spontaneous
  Country: US (occurrence: None)
  Receive Date: 20140328
  Receipt Date: 20140328
  Transmission Date: 20141002
  Serious: Yes (Other)
  Sender: FDA-Public Use
  Company Number: None

PATIENT
  Age: 73 Year
  Sex: Female

DRUGS (1)
  1. PROLIA [Suspect]
     Indication: OSTEOPOROSIS
     Route: 058
     Dates: start: 20130315, end: 20130925

REACTIONS (8)
  - Rash [None]
  - Pruritus [None]
  - Speech disorder [None]
  - Tongue disorder [None]
  - Dizziness [None]
  - Pain in jaw [None]
  - Dysgeusia [None]
  - Jaw disorder [None]
